FAERS Safety Report 9926119 (Version 1)
Quarter: 2014Q1

REPORT INFORMATION
  Report Type: Spontaneous
  Country: DK (occurrence: DE)
  Receive Date: 20140226
  Receipt Date: 20140226
  Transmission Date: 20141002
  Serious: Yes (Congenital Anomaly, Other)
  Sender: FDA-Public Use
  Company Number: DE-FRI-1000054597

PATIENT
  Age: 0 None
  Sex: Male
  Weight: 2.14 kg

DRUGS (3)
  1. ESCITALOPRAM [Suspect]
     Indication: DEPRESSION
     Dosage: 20 MG
     Route: 064
     Dates: start: 20120525, end: 20130207
  2. LAMOTRIGIN [Suspect]
     Indication: DEPRESSION
     Dosage: 150 MG
     Route: 064
     Dates: start: 20120525, end: 20130207
  3. FEMIBION [Concomitant]
     Indication: PROPHYLAXIS OF NEURAL TUBE DEFECT
     Dosage: 0.8 MG
     Route: 064
     Dates: end: 20130207

REACTIONS (7)
  - Hypospadias [Not Recovered/Not Resolved]
  - Premature baby [Recovering/Resolving]
  - Small for dates baby [Recovering/Resolving]
  - Low birth weight baby [Unknown]
  - Motor developmental delay [Unknown]
  - Hypotonia [Unknown]
  - Foetal exposure during pregnancy [Unknown]
